FAERS Safety Report 14552816 (Version 1)
Quarter: 2018Q1

REPORT INFORMATION
  Report Type: Spontaneous
  Country: US (occurrence: US)
  Receive Date: 20180216
  Receipt Date: 20180216
  Transmission Date: 20180509
  Serious: Yes (Hospitalization)
  Sender: FDA-Public Use
  Company Number: None

PATIENT
  Sex: Male

DRUGS (18)
  1. TAMSULOSIN [Concomitant]
     Active Substance: TAMSULOSIN
  2. L-THYROXINE [Concomitant]
     Active Substance: LEVOTHYROXINE
  3. TYLENOL [Concomitant]
     Active Substance: ACETAMINOPHEN
  4. TEMOZOLOMIDE 20MG CAPS [Suspect]
     Active Substance: TEMOZOLOMIDE
     Indication: BRAIN NEOPLASM MALIGNANT
     Dosage: FREQUENCY - QS DAYS 1-5 OF CYC
     Route: 048
     Dates: start: 20171024
  5. METOPROL SUCCINATE [Concomitant]
     Active Substance: METOPROLOL SUCCINATE
  6. FLUTICASONE. [Concomitant]
     Active Substance: FLUTICASONE
  7. ATORVASTATIN [Concomitant]
     Active Substance: ATORVASTATIN
  8. LEVAQUIN [Concomitant]
     Active Substance: LEVOFLOXACIN
  9. DEXAMETHASONE. [Concomitant]
     Active Substance: DEXAMETHASONE
  10. ALPRAZOLAM. [Concomitant]
     Active Substance: ALPRAZOLAM
  11. COLACE [Concomitant]
     Active Substance: DOCUSATE SODIUM
  12. TEMOZOLOMIDE 100MG CAPSULE [Suspect]
     Active Substance: TEMOZOLOMIDE
     Indication: BRAIN NEOPLASM MALIGNANT
     Dosage: FREQUENCY - QD DAYS 1-4 OF CYC
     Route: 048
     Dates: start: 20180105
  13. FLAGYL [Concomitant]
     Active Substance: METRONIDAZOLE\METRONIDAZOLE HYDROCHLORIDE
  14. LEVETIRACETAM. [Concomitant]
     Active Substance: LEVETIRACETAM
  15. PANTOPRAZOLE [Concomitant]
     Active Substance: PANTOPRAZOLE
  16. SUCRALFATE. [Concomitant]
     Active Substance: SUCRALFATE
  17. SENNOSIDES. [Concomitant]
     Active Substance: SENNOSIDES
  18. GLUCOPHAGE [Concomitant]
     Active Substance: METFORMIN HYDROCHLORIDE

REACTIONS (1)
  - Therapy cessation [None]
